FAERS Safety Report 8996851 (Version 1)
Quarter: 2012Q4

REPORT INFORMATION
  Report Type: Spontaneous
  Country: RO (occurrence: None)
  Receive Date: 20121220
  Receipt Date: 20121220
  Transmission Date: 20130627
  Serious: Yes (Other)
  Sender: FDA-Public Use
  Company Number: 2012-22107

PATIENT
  Age: 24 Year
  Sex: Male

DRUGS (1)
  1. ZOLPIDEM [Suspect]
     Indication: AGITATION

REACTIONS (1)
  - Therapeutic response unexpected [None]
